FAERS Safety Report 4965161-4 (Version None)
Quarter: 2006Q2

REPORT INFORMATION
  Report Type: 
  Country: None (occurrence: None)
  Receive Date: 20060406
  Receipt Date: 20060306
  Transmission Date: 20061013
  Serious: Yes (Other)
  Sender: FDA-Public Use
  Company Number: GB-BOEHRINGER INGELHEIM PHARMACEUTICALS, INC.-2006-BP-02722YA

PATIENT
  Sex: Male
  Weight: 75 kg

DRUGS (1)
  1. FLOMAX [Suspect]
     Indication: URINE FLOW DECREASED
     Route: 048
     Dates: start: 19940101, end: 20060201

REACTIONS (5)
  - ACCIDENT [None]
  - BLOOD PRESSURE INCREASED [None]
  - MITRAL VALVE INCOMPETENCE [None]
  - QRS AXIS ABNORMAL [None]
  - VENTRICULAR HYPERTROPHY [None]
